FAERS Safety Report 6761422-7 (Version None)
Quarter: 2010Q2

REPORT INFORMATION
  Report Type: 
  Country: None (occurrence: None)
  Receive Date: 20100608
  Receipt Date: 20100604
  Transmission Date: 20101027
  Serious: Yes (Hospitalization)
  Sender: FDA-Public Use
  Company Number: PK-ROCHE-698983

PATIENT
  Sex: Female
  Weight: 59 kg

DRUGS (3)
  1. PEGINTERFERON ALFA-2A [Suspect]
     Indication: HEPATITIS C
     Route: 058
     Dates: start: 20100118, end: 20100422
  2. RIBAZOLE [Suspect]
     Indication: HEPATITIS C
     Dosage: DOSE: 800
     Route: 048
     Dates: start: 20100118, end: 20100422
  3. LEXOTANIL [Concomitant]
     Indication: INSOMNIA
     Dosage: FREQUENCY: SOS
     Route: 048

REACTIONS (6)
  - ALTERED STATE OF CONSCIOUSNESS [None]
  - ASCITES [None]
  - ASTHENIA [None]
  - DYSPNOEA [None]
  - GINGIVAL BLEEDING [None]
  - HYPONATRAEMIA [None]
